FAERS Safety Report 6178982-X (Version None)
Quarter: 2009Q2

REPORT INFORMATION
  Report Type: 
  Country: None (occurrence: None)
  Receive Date: 20090430
  Receipt Date: 20090415
  Transmission Date: 20091009
  Serious: Yes (Other)
  Sender: FDA-Public Use
  Company Number: DEP_00258_2009

PATIENT
  Age: 85 Year
  Sex: Male

DRUGS (9)
  1. CIPROFLOXACIN [Suspect]
     Indication: HYPOPHAGIA
     Dosage: DF
     Dates: start: 20070226, end: 20070301
  2. CIPROFLOXACIN [Suspect]
     Indication: INJECTION
     Dosage: DF
     Dates: start: 20070226, end: 20070301
  3. CIPROFLOXACIN [Suspect]
     Indication: LETHARGY
     Dosage: DF
     Dates: start: 20070226, end: 20070301
  4. MIRTAZAPINE [Concomitant]
  5. CARBIDOPA AND LEVODOPA [Concomitant]
  6. TAMSULOSIN HCL [Concomitant]
  7. FINASTERIDE [Concomitant]
  8. TRAVOPROST [Concomitant]
  9. METIPRANOLOL [Concomitant]

REACTIONS (1)
  - MANIA [None]
